FAERS Safety Report 5487029-X (Version None)
Quarter: 2007Q4

REPORT INFORMATION
  Report Type: 
  Country: None (occurrence: None)
  Receive Date: 20071012
  Receipt Date: 20071012
  Transmission Date: 20080405
  Serious: Yes (Other)
  Sender: FDA-Public Use
  Company Number: None

PATIENT
  Age: 45 Year
  Sex: Female
  Weight: 49.8957 kg

DRUGS (1)
  1. CHANTIX [Suspect]
     Indication: SMOKING CESSATION THERAPY
     Dosage: 1/2 TAB EVERYDAY FOR 3 DAYS   1 2X PER DAY  PO
     Route: 048
     Dates: start: 20070708, end: 20071008

REACTIONS (9)
  - ABDOMINAL PAIN UPPER [None]
  - ABNORMAL DREAMS [None]
  - AGGRESSION [None]
  - DEPRESSION [None]
  - FATIGUE [None]
  - FEELING ABNORMAL [None]
  - POOR QUALITY SLEEP [None]
  - RESPIRATORY TRACT INFECTION [None]
  - VISUAL ACUITY REDUCED [None]
